FAERS Safety Report 13667514 (Version 2)
Quarter: 2017Q2

REPORT INFORMATION
  Report Type: Report from Study
  Country: None (occurrence: CA)
  Receive Date: 20170620
  Receipt Date: 20170627
  Transmission Date: 20170830
  Serious: Yes (Other)
  Sender: FDA-Public Use
  Company Number: CA-ABBVIE-17K-028-2008523-00

PATIENT
  Sex: Female

DRUGS (2)
  1. PENTASA [Suspect]
     Active Substance: MESALAMINE
     Indication: GASTROINTESTINAL HAEMORRHAGE
     Route: 065
  2. HUMIRA [Suspect]
     Active Substance: ADALIMUMAB
     Indication: COLITIS ULCERATIVE
     Route: 058
     Dates: start: 20161013, end: 20170420

REACTIONS (6)
  - Abdominal discomfort [Unknown]
  - Gastrointestinal haemorrhage [Not Recovered/Not Resolved]
  - Nephrolithiasis [Unknown]
  - Malignant splenic neoplasm [Not Recovered/Not Resolved]
  - Splenic lesion [Not Recovered/Not Resolved]
  - Lymphoma [Unknown]

NARRATIVE: CASE EVENT DATE: 2017
